FAERS Safety Report 22525533 (Version 1)
Quarter: 2023Q2

REPORT INFORMATION
  Report Type: Spontaneous
  Country: US (occurrence: None)
  Receive Date: 20230605
  Receipt Date: 20230605
  Transmission Date: 20230721
  Serious: Yes (Other)
  Sender: FDA-Public Use
  Company Number: None

PATIENT
  Age: 28 Year
  Sex: Female
  Weight: 76.5 kg

DRUGS (1)
  1. HUMIRA [Suspect]
     Active Substance: ADALIMUMAB

REACTIONS (8)
  - Fungal infection [None]
  - Multiple allergies [None]
  - Urticaria [None]
  - Rash [None]
  - Dry skin [None]
  - Nail disorder [None]
  - Skin discolouration [None]
  - Photosensitivity reaction [None]

NARRATIVE: CASE EVENT DATE: 20230605
